FAERS Safety Report 21971932 (Version 5)
Quarter: 2023Q1

REPORT INFORMATION
  Report Type: Report from Study
  Country: FR (occurrence: FR)
  Receive Date: 20230209
  Receipt Date: 20230221
  Transmission Date: 20230417
  Serious: Yes (Other)
  Sender: FDA-Public Use
  Company Number: FR-ABBVIE-4301013

PATIENT
  Age: 58 Year
  Sex: Male

DRUGS (2)
  1. CARBIDOPA\LEVODOPA [Suspect]
     Active Substance: CARBIDOPA\LEVODOPA
     Indication: Parkinson^s disease
     Route: 050
     Dates: start: 20211206
  2. CARBIDOPA\LEVODOPA [Suspect]
     Active Substance: CARBIDOPA\LEVODOPA

REACTIONS (18)
  - General physical health deterioration [Not Recovered/Not Resolved]
  - Hypoaesthesia [Not Recovered/Not Resolved]
  - Gait disturbance [Not Recovered/Not Resolved]
  - Crying [Not Recovered/Not Resolved]
  - Road traffic accident [Unknown]
  - Loss of personal independence in daily activities [Not Recovered/Not Resolved]
  - Formication [Not Recovered/Not Resolved]
  - Abnormal behaviour [Not Recovered/Not Resolved]
  - Unevaluable event [Not Recovered/Not Resolved]
  - Memory impairment [Not Recovered/Not Resolved]
  - Pain [Not Recovered/Not Resolved]
  - Sexual dysfunction [Not Recovered/Not Resolved]
  - Hypersensitivity [Not Recovered/Not Resolved]
  - Dysphonia [Not Recovered/Not Resolved]
  - Movement disorder [Not Recovered/Not Resolved]
  - Personality change [Not Recovered/Not Resolved]
  - Mental disorder [Not Recovered/Not Resolved]
  - Akinesia [Unknown]

NARRATIVE: CASE EVENT DATE: 20230101
